FAERS Safety Report 25699490 (Version 1)
Quarter: 2025Q3

REPORT INFORMATION
  Report Type: Spontaneous
  Country: MX (occurrence: MX)
  Receive Date: 20250819
  Receipt Date: 20250819
  Transmission Date: 20251021
  Serious: Yes (Death)
  Sender: BAYER HEALTHCARE PHARMACEUTICALS INC.
  Company Number: MX-BAYER-2025A109841

PATIENT

DRUGS (1)
  1. ADEMPAS [Suspect]
     Active Substance: RIOCIGUAT

REACTIONS (1)
  - Death [Fatal]
